FAERS Safety Report 25642355 (Version 1)
Quarter: 2025Q3

REPORT INFORMATION
  Report Type: Spontaneous
  Country: US (occurrence: US)
  Receive Date: 20250805
  Receipt Date: 20250805
  Transmission Date: 20251020
  Serious: No
  Sender: TOLMAR
  Company Number: US-Tolmar-TLM-2025-04523

PATIENT

DRUGS (4)
  1. ELIGARD [Suspect]
     Active Substance: LEUPROLIDE ACETATE
     Indication: Prostate cancer metastatic
  2. ELIGARD [Suspect]
     Active Substance: LEUPROLIDE ACETATE
     Indication: Metastases to bone
  3. DEVICE [Suspect]
     Active Substance: DEVICE
     Indication: Prostate cancer metastatic
  4. DEVICE [Suspect]
     Active Substance: DEVICE
     Indication: Metastases to bone

REACTIONS (3)
  - Intercepted product preparation error [Unknown]
  - Product preparation error [Unknown]
  - Device occlusion [Unknown]
